FAERS Safety Report 11537425 (Version 2)
Quarter: 2015Q4

REPORT INFORMATION
  Report Type: Spontaneous
  Country: US (occurrence: US)
  Receive Date: 20150922
  Receipt Date: 20151013
  Transmission Date: 20160304
  Serious: No
  Sender: FDA-Public Use
  Company Number: US-PFIZER INC-2015313766

PATIENT
  Age: 77 Year
  Sex: Female
  Weight: 64 kg

DRUGS (4)
  1. CYTOMEL [Suspect]
     Active Substance: LIOTHYRONINE SODIUM
     Dosage: 5 ?G, 1X/DAY IN THE MORNING
     Route: 048
     Dates: start: 2013, end: 20150907
  2. CYTOMEL [Suspect]
     Active Substance: LIOTHYRONINE SODIUM
     Indication: SUPPLEMENTATION THERAPY
     Dosage: 5 ?G, 1X/DAY IN THE MORNING
     Route: 048
     Dates: start: 2013, end: 20150907
  3. NUTRIENT 950 [Concomitant]
     Indication: VITAMIN SUPPLEMENTATION
     Dosage: 3 DF, 2X/DAY
     Dates: end: 201505
  4. SYNTHROID [Suspect]
     Active Substance: LEVOTHYROXINE SODIUM
     Indication: AUTOIMMUNE THYROIDITIS
     Dosage: 100 ?G, DAILY IN THE MORNING
     Route: 048
     Dates: start: 2013, end: 20150907

REACTIONS (15)
  - Headache [Recovered/Resolved]
  - Blood selenium abnormal [Recovering/Resolving]
  - Feeling abnormal [Recovering/Resolving]
  - Frequent bowel movements [Recovered/Resolved]
  - Myalgia [Recovering/Resolving]
  - Fatigue [Recovered/Resolved]
  - Gastrooesophageal reflux disease [Recovering/Resolving]
  - Madarosis [Recovering/Resolving]
  - Somnolence [Recovered/Resolved]
  - Wrong drug administered [Unknown]
  - Nausea [Recovering/Resolving]
  - Hair disorder [Recovering/Resolving]
  - Diarrhoea [Recovered/Resolved]
  - Feeling cold [Recovered/Resolved]
  - Arthralgia [Recovering/Resolving]

NARRATIVE: CASE EVENT DATE: 2013
